FAERS Safety Report 7897281-9 (Version None)
Quarter: 2011Q4

REPORT INFORMATION
  Report Type: 
  Country: None (occurrence: None)
  Receive Date: 20111107
  Receipt Date: 20111028
  Transmission Date: 20120403
  Serious: Yes (Other)
  Sender: FDA-Public Use
  Company Number: PHEH2006US10885

PATIENT
  Sex: Female
  Weight: 51.247 kg

DRUGS (62)
  1. LEVAQUIN [Concomitant]
  2. CLOBETASOL [Concomitant]
  3. DETROL                                  /USA/ [Concomitant]
  4. CITALOPRAM [Concomitant]
  5. PERCOCET [Concomitant]
  6. VITAMIN E [Concomitant]
  7. CALCIUM [Concomitant]
  8. PENLAC [Concomitant]
  9. ESTRADIOL AND NORETHINDRONE ACETATE [Concomitant]
  10. PERIDEX [Concomitant]
  11. ATIVAN [Concomitant]
  12. CYTOXAN [Concomitant]
  13. MESNA [Concomitant]
  14. FERROUS SULFATE TAB [Concomitant]
  15. MEDROXYPROGESTERONE [Concomitant]
  16. AVELOX [Concomitant]
  17. ALLEGRA [Concomitant]
  18. BENADRYL ^ACHE^ [Concomitant]
  19. EVISTA [Concomitant]
  20. DECADRON [Concomitant]
  21. COMPAZINE [Concomitant]
     Dosage: 10 MG, Q6H, WHEN NEEDED
  22. ARANESP [Concomitant]
  23. ZOMETA [Suspect]
  24. ZITHROMAX [Concomitant]
  25. CLINDAMYCIN HCL [Concomitant]
  26. AZITHROMYCIN [Concomitant]
  27. VENLAFAXINE HYDROCHLORIDE [Concomitant]
  28. HYDROCORTISONE [Concomitant]
  29. PROVERA [Concomitant]
  30. HORMONES [Concomitant]
  31. DIFLUNISAL [Concomitant]
  32. POLYETHYLENE GLYCOL [Concomitant]
  33. MACROBID [Concomitant]
  34. NYSTATIN [Concomitant]
  35. MULTI-VITAMIN [Concomitant]
  36. PAMIDRONATE DISODIUM [Concomitant]
     Dosage: 90 MG, UNK
  37. AREDIA [Suspect]
     Dates: end: 20030101
  38. IRON [Concomitant]
  39. EFFEXOR XR [Concomitant]
  40. OXYCODONE HCL AND ACETAMINOPHEN [Concomitant]
  41. INTERFERON [Concomitant]
  42. CYCLOPHOSPHAMIDE [Concomitant]
  43. CIPRO [Concomitant]
  44. FOLATE SODIUM [Concomitant]
  45. AXID [Concomitant]
     Dosage: 150 MG, QD
     Route: 048
  46. CELEXA [Concomitant]
  47. IMITREX ^GLAXO^ [Concomitant]
  48. FEOGEN FA [Concomitant]
  49. ACTIVELLA [Concomitant]
  50. NASONEX [Concomitant]
  51. VINCRISTINE + ADRIAMYCIN + DEXAMETHASONE [Concomitant]
  52. ACYCLOVIR [Concomitant]
  53. PREDNISONE [Concomitant]
  54. PREMARIN [Concomitant]
  55. CHLORHEXIDINE GLUCONATE [Concomitant]
  56. AMOXICILLIN [Concomitant]
  57. CLARITHROMYCIN [Concomitant]
  58. PROZAC [Concomitant]
  59. ACETAMINOPHEN W/ CODEINE [Concomitant]
  60. PERIOGARD [Concomitant]
  61. FAMCICLOVIR [Concomitant]
     Dosage: 500 MG, TID
     Route: 048
  62. BACTRIM [Concomitant]

REACTIONS (66)
  - MOUTH HAEMORRHAGE [None]
  - ENDOMETRIAL HYPERPLASIA [None]
  - ROAD TRAFFIC ACCIDENT [None]
  - VENTRICULAR HYPERTROPHY [None]
  - TOOTH FRACTURE [None]
  - GENERAL PHYSICAL HEALTH DETERIORATION [None]
  - PAIN [None]
  - VITREOUS FLOATERS [None]
  - VISUAL ACUITY REDUCED [None]
  - DYSGEUSIA [None]
  - FOOT DEFORMITY [None]
  - NERVOUS SYSTEM DISORDER [None]
  - CONTUSION [None]
  - IMPAIRED HEALING [None]
  - OSTEONECROSIS OF JAW [None]
  - LOOSE TOOTH [None]
  - PHOTOPSIA [None]
  - LIP SWELLING [None]
  - INFECTION [None]
  - DYSPEPSIA [None]
  - OSTEOPOROSIS [None]
  - ANXIETY [None]
  - TOOTH DISORDER [None]
  - SENSITIVITY OF TEETH [None]
  - COLONIC POLYP [None]
  - SPINAL OSTEOARTHRITIS [None]
  - BONE DENSITY INCREASED [None]
  - UTERINE MASS [None]
  - OSTEOPENIA [None]
  - POSTERIOR CAPSULE OPACIFICATION [None]
  - BONE DISORDER [None]
  - OSTEOMYELITIS [None]
  - HYPERKERATOSIS [None]
  - MULTIPLE MYELOMA [None]
  - COGNITIVE DISORDER [None]
  - SUBCUTANEOUS NODULE [None]
  - ANAEMIA [None]
  - BRONCHITIS [None]
  - FEMUR FRACTURE [None]
  - FALL [None]
  - SINUSITIS [None]
  - HAEMATOMA [None]
  - ONYCHOMYCOSIS [None]
  - NASAL OBSTRUCTION [None]
  - OSTEOLYSIS [None]
  - IRON DEFICIENCY [None]
  - HEPATIC CYST [None]
  - DRY MOUTH [None]
  - TOOTH DEPOSIT [None]
  - DECREASED INTEREST [None]
  - SKIN PAPILLOMA [None]
  - ORAL CAVITY FISTULA [None]
  - HYPERTONIC BLADDER [None]
  - PAROSMIA [None]
  - SPINAL DISORDER [None]
  - CEREBRAL ATROPHY [None]
  - EXOSTOSIS [None]
  - VISUAL IMPAIRMENT [None]
  - OSTEORADIONECROSIS [None]
  - SECONDARY SEQUESTRUM [None]
  - HAEMATURIA [None]
  - RHINITIS ALLERGIC [None]
  - MENISCUS LESION [None]
  - JOINT INJURY [None]
  - NOCTURIA [None]
  - MARROW HYPERPLASIA [None]
